FAERS Safety Report 8339781-3 (Version None)
Quarter: 2012Q2

REPORT INFORMATION
  Report Type: 
  Country: None (occurrence: None)
  Receive Date: 20120507
  Receipt Date: 20120501
  Transmission Date: 20120825
  Serious: Yes (Hospitalization)
  Sender: FDA-Public Use
  Company Number: NL-MEDIMMUNE-MEDI-0014163

PATIENT
  Sex: Male
  Weight: 5.12 kg

DRUGS (6)
  1. SYNAGIS [Suspect]
     Indication: PREMATURE BABY
     Route: 030
     Dates: start: 20110923, end: 20111114
  2. FERROUS GLUCONATE [Concomitant]
  3. PHYTONADIONE [Concomitant]
  4. ERGOCALCIFEROL [Concomitant]
  5. SYNAGIS [Suspect]
     Route: 030
     Dates: start: 20120314, end: 20120314
  6. FERROUS FUMARATE [Concomitant]

REACTIONS (3)
  - SHUNT OCCLUSION [None]
  - DEVICE DISLOCATION [None]
  - CEREBRAL VENTRICLE DILATATION [None]
